FAERS Safety Report 11046718 (Version 1)
Quarter: 2015Q2

REPORT INFORMATION
  Report Type: Spontaneous
  Country: US (occurrence: US)
  Receive Date: 20150420
  Receipt Date: 20150420
  Transmission Date: 20150821
  Serious: Yes (Other)
  Sender: FDA-Public Use
  Company Number: US-ACCORD-030116

PATIENT
  Age: 78 Year
  Sex: Female

DRUGS (7)
  1. ACETYLSALICYLIC ACID [Concomitant]
     Active Substance: ASPIRIN
  2. DOCETAXEL. [Suspect]
     Active Substance: DOCETAXEL
     Indication: SARCOMA
  3. GEMCITABINE/GEMCITABINE HYDROCHLORIDE [Suspect]
     Active Substance: GEMCITABINE\GEMCITABINE HYDROCHLORIDE
     Indication: SARCOMA
  4. AMLODIPINE [Concomitant]
     Active Substance: AMLODIPINE BESYLATE
  5. LISINOPRIL. [Concomitant]
     Active Substance: LISINOPRIL
  6. INSULIN [Concomitant]
     Active Substance: INSULIN NOS
  7. HEPARIN [Concomitant]
     Active Substance: HEPARIN SODIUM
     Route: 058

REACTIONS (5)
  - Pericardial effusion [Unknown]
  - Malignant neoplasm progression [None]
  - Choroidal effusion [Recovered/Resolved]
  - Retinal detachment [Recovered/Resolved]
  - Sarcoma [None]
